FAERS Safety Report 8089579-9 (Version None)
Quarter: 2012Q1

REPORT INFORMATION
  Report Type: 
  Country: None (occurrence: None)
  Receive Date: 20120128
  Receipt Date: 20110707
  Transmission Date: 20120608
  Serious: No
  Sender: FDA-Public Use
  Company Number: US-ABBOTT-11P-163-0837733-00

PATIENT
  Sex: Female

DRUGS (4)
  1. ISONIAZID [Concomitant]
     Indication: TUBERCULOSIS
     Route: 048
     Dates: start: 20110701
  2. HUMIRA [Suspect]
     Indication: RHEUMATOID ARTHRITIS
     Route: 058
     Dates: start: 20110706
  3. SYNTHROID [Concomitant]
     Indication: HYPOTHYROIDISM
     Route: 048
  4. VITAMIN B6 [Concomitant]
     Indication: TUBERCULOSIS
     Route: 048
     Dates: start: 20110701

REACTIONS (1)
  - INJECTION SITE PAIN [None]
